FAERS Safety Report 10761568 (Version 1)
Quarter: 2015Q1

REPORT INFORMATION
  Report Type: Spontaneous
  Country: US (occurrence: None)
  Receive Date: 20150128
  Receipt Date: 20150128
  Transmission Date: 20150721
  Serious: Yes (Other)
  Sender: FDA-Public Use
  Company Number: 1437606

PATIENT
  Age: 37 Year
  Sex: Female
  Weight: 52.62 kg

DRUGS (4)
  1. C1 ESTERASE INHIBITOR (HUMAN) [Suspect]
     Active Substance: HUMAN C1-ESTERASE INHIBITOR
     Indication: HEREDITARY ANGIOEDEMA
     Dosage: 500 UNITS, INTRAVENOUS?
     Route: 042
     Dates: start: 2012
  2. ICATIBANT (ICATIBANT) [Concomitant]
  3. BENDAMUSTINE (BENDAMUSTINE) (BENDAMUSTINE) [Suspect]
     Active Substance: BENDAMUSTINE
     Indication: NON-HODGKIN^S LYMPHOMA
  4. RITUXAN [Suspect]
     Active Substance: RITUXIMAB
     Indication: LYMPHOMA
     Dosage: 1 IN 3 D
     Dates: start: 2013

REACTIONS (6)
  - B-cell lymphoma [None]
  - Ear pain [None]
  - Neck pain [None]
  - Chronic sinusitis [None]
  - Hereditary angioedema [None]
  - Inappropriate schedule of drug administration [None]

NARRATIVE: CASE EVENT DATE: 201304
